FAERS Safety Report 10888845 (Version 5)
Quarter: 2016Q2

REPORT INFORMATION
  Report Type: Spontaneous
  Country: US (occurrence: US)
  Receive Date: 20150305
  Receipt Date: 20160425
  Transmission Date: 20160815
  Serious: No
  Sender: FDA-Public Use
  Company Number: US-PFIZER INC-2015075697

PATIENT
  Age: 78 Year
  Sex: Female
  Weight: 96 kg

DRUGS (11)
  1. SALICYLATE SODIUM [Concomitant]
     Active Substance: SODIUM SALICYLATE
     Dosage: 500 MG, UNK
  2. LYRICA [Suspect]
     Active Substance: PREGABALIN
     Indication: NEUROPATHY PERIPHERAL
     Dosage: 50 MG, 2X/DAY
     Dates: start: 2010
  3. LYRICA [Suspect]
     Active Substance: PREGABALIN
     Dosage: 150 MG, DAILY (50 MG IN MORNING, 50 MG IN EVENING AND 25 TWICE A DAY DURING LUNCH)
  4. LEVOTHYROXINE. [Concomitant]
     Active Substance: LEVOTHYROXINE
     Indication: THYROIDECTOMY
     Dosage: 25 UG, (MONDAY TO SATURDAY 1 TABLET AND ON SUNDAY HALF A TABLET)
  5. XANAX [Concomitant]
     Active Substance: ALPRAZOLAM
     Indication: PAIN
     Dosage: 1 MG, UNK (THREE HALF TIMES A DAY AND ONE WHOLE IN EVENING AND THE NIGHT TIME)
  6. LYRICA [Suspect]
     Active Substance: PREGABALIN
     Dosage: 175 MG, 1X/DAY, (TWO 50MG AND THREE 25MG CAPSULES PER DAY)
  7. LYRICA [Suspect]
     Active Substance: PREGABALIN
     Dosage: 125 MG, 3X/DAY
  8. APIDRA [Concomitant]
     Active Substance: INSULIN GLULISINE
     Indication: DIABETES MELLITUS
     Dosage: 1 MG MOST OF THE TIME
  9. SYNTHROID [Suspect]
     Active Substance: LEVOTHYROXINE SODIUM
     Indication: PARAESTHESIA
     Dosage: 100 MG, 1X/DAY (IN THE MORNING)
  10. ALPRAZOLAM. [Concomitant]
     Active Substance: ALPRAZOLAM
     Dosage: UNK (1 MG UP TO 3 TIMES DAY, SHE TAKE USUALLY HALF IN MORNING, HALF AT LUNCH AND WHOLE AT NIGHT)
  11. LANTUS [Concomitant]
     Active Substance: INSULIN GLARGINE
     Indication: DIABETES MELLITUS
     Dosage: UNK

REACTIONS (12)
  - Gait disturbance [Not Recovered/Not Resolved]
  - Finger deformity [Unknown]
  - Myalgia [Not Recovered/Not Resolved]
  - Nervousness [Unknown]
  - Neuropathy peripheral [Not Recovered/Not Resolved]
  - Oral mucosal blistering [Unknown]
  - Gingival blister [Unknown]
  - Joint swelling [Not Recovered/Not Resolved]
  - Muscle disorder [Not Recovered/Not Resolved]
  - Pain [Not Recovered/Not Resolved]
  - Peripheral swelling [Not Recovered/Not Resolved]
  - Condition aggravated [Not Recovered/Not Resolved]

NARRATIVE: CASE EVENT DATE: 201409
